FAERS Safety Report 9680543 (Version 3)
Quarter: 2013Q4

REPORT INFORMATION
  Report Type: Spontaneous
  Country: US (occurrence: US)
  Receive Date: 20131111
  Receipt Date: 20131125
  Transmission Date: 20140711
  Serious: Yes (Other)
  Sender: FDA-Public Use
  Company Number: US-PFIZER INC-2013316244

PATIENT
  Age: 70 Year
  Sex: Female

DRUGS (8)
  1. LYRICA [Suspect]
     Indication: NEUROPATHY PERIPHERAL
     Dosage: 50 MG, 1X/DAY
     Dates: start: 20130520
  2. LYRICA [Suspect]
     Dosage: 50 MG, 2X/DAY
     Dates: start: 20130530
  3. LYRICA [Suspect]
     Dosage: 50 MG, 3X/DAY
     Dates: start: 20130613
  4. SYNTHROID [Concomitant]
     Dosage: UNK
  5. AMLODIPINE [Concomitant]
     Dosage: UNK
  6. URSODIOL [Concomitant]
     Dosage: UNK
  7. OMEPRAZID [Concomitant]
     Dosage: UNK
  8. SIMVASTATIN [Concomitant]
     Dosage: UNK

REACTIONS (2)
  - Angioedema [Unknown]
  - Swelling face [Recovered/Resolved]
